FAERS Safety Report 20297761 (Version 1)
Quarter: 2022Q1

REPORT INFORMATION
  Report Type: Spontaneous
  Country: US (occurrence: None)
  Receive Date: 20220105
  Receipt Date: 20220105
  Transmission Date: 20220424
  Serious: No
  Sender: FDA-Public Use
  Company Number: 2021A882667

PATIENT
  Sex: Female
  Weight: 47.2 kg

DRUGS (1)
  1. BUDESONIDE\FORMOTEROL\GLYCOPYRRONIUM [Suspect]
     Active Substance: BUDESONIDE\FORMOTEROL\GLYCOPYRRONIUM
     Indication: Chronic obstructive pulmonary disease
     Dosage: 2 PUFFS EVERY 12 HOURS APART
     Route: 055

REACTIONS (10)
  - Confusional state [Unknown]
  - Adverse event [Unknown]
  - Adverse event [Unknown]
  - Product dose omission issue [Unknown]
  - Dyspnoea [Unknown]
  - Lung disorder [Unknown]
  - Panic attack [Unknown]
  - Adverse drug reaction [Unknown]
  - Drug ineffective [Unknown]
  - Product dose omission in error [Unknown]
